FAERS Safety Report 6013188-6 (Version None)
Quarter: 2008Q4

REPORT INFORMATION
  Report Type: 
  Country: None (occurrence: None)
  Receive Date: 20081219
  Receipt Date: 20081215
  Transmission Date: 20090506
  Serious: Yes (Other)
  Sender: FDA-Public Use
  Company Number: GB-ASTRAZENECA-2008GB01852

PATIENT
  Age: 53 Year
  Sex: Female

DRUGS (11)
  1. SEROQUEL XR [Suspect]
     Indication: PSYCHOTIC DISORDER
     Dosage: 800 MG
     Route: 048
  2. STELAZINE [Concomitant]
  3. NSA [Concomitant]
  4. ATORVASTATIN [Concomitant]
  5. REQUIP [Concomitant]
  6. LACTULOSE [Concomitant]
  7. MOVICOL [Concomitant]
  8. LANSOPRAZOLE [Concomitant]
  9. KEMADREN [Concomitant]
  10. COMBIVENT [Concomitant]
  11. FORTISIP [Concomitant]

REACTIONS (3)
  - FALL [None]
  - HIP FRACTURE [None]
  - ORTHOSTATIC HYPOTENSION [None]
